FAERS Safety Report 7966268-X (Version None)
Quarter: 2011Q4

REPORT INFORMATION
  Report Type: 
  Country: None (occurrence: None)
  Receive Date: 20111208
  Receipt Date: 20111207
  Transmission Date: 20120403
  Serious: Yes (Other)
  Sender: FDA-Public Use
  Company Number: PHHY2011NL106665

PATIENT
  Sex: Male

DRUGS (3)
  1. ZOMETA [Suspect]
     Dosage: 4MG/5ML ONCE PER 28 DAYS
     Route: 042
     Dates: start: 20111021
  2. ZOMETA [Suspect]
     Indication: LUNG CANCER METASTATIC
     Dosage: 4MG/5ML ONCE PER 28 DAYS
     Route: 042
     Dates: start: 20110527
  3. ZOMETA [Suspect]
     Dosage: 4MG/5ML ONCE PER 28 DAYS
     Route: 042
     Dates: start: 20111118

REACTIONS (1)
  - TERMINAL STATE [None]
